FAERS Safety Report 14751060 (Version 1)
Quarter: 2018Q2

REPORT INFORMATION
  Report Type: Spontaneous
  Country: US (occurrence: US)
  Receive Date: 20180412
  Receipt Date: 20180412
  Transmission Date: 20180711
  Serious: No
  Sender: FDA-Public Use
  Company Number: US-BAYER-2018-063525

PATIENT
  Age: 77 Year
  Sex: Female
  Weight: 92.97 kg

DRUGS (1)
  1. MIRALAX [Suspect]
     Active Substance: POLYETHYLENE GLYCOL 3350
     Indication: CONSTIPATION
     Route: 048
     Dates: start: 201803, end: 201803

REACTIONS (4)
  - Drug ineffective [Unknown]
  - Infrequent bowel movements [Unknown]
  - Drug effect decreased [Unknown]
  - Product use in unapproved indication [None]

NARRATIVE: CASE EVENT DATE: 201803
